FAERS Safety Report 25791177 (Version 2)
Quarter: 2025Q4

REPORT INFORMATION
  Report Type: Spontaneous
  Country: TW (occurrence: TW)
  Receive Date: 20250911
  Receipt Date: 20251017
  Transmission Date: 20260118
  Serious: Yes (Hospitalization)
  Sender: MYLAN
  Company Number: TW-MYLANLABS-2025M1077137

PATIENT
  Age: 33 Year
  Sex: Female
  Weight: 61.8 kg

DRUGS (8)
  1. METHOTREXATE [Suspect]
     Active Substance: METHOTREXATE
     Indication: Gestational trophoblastic tumour
     Dosage: 50 MILLIGRAM, Q2W,1, 3, 5, AND 7 EVERY TWO WEEKS
     Dates: start: 20240311, end: 20240417
  2. METHOTREXATE [Suspect]
     Active Substance: METHOTREXATE
     Dosage: 165 MILLIGRAM
  3. METHOTREXATE [Suspect]
     Active Substance: METHOTREXATE
     Dosage: 335 MILLIGRAM, IN 500 ML OF NORMAL SALINE INFUSED OVER 12 HOURS
  4. METHOTREXATE [Suspect]
     Active Substance: METHOTREXATE
     Dosage: UNK, EMA-CO REGIMEN WAS COMPLETED
  5. ETOPOSIDE [Suspect]
     Active Substance: ETOPOSIDE
     Indication: Gestational trophoblastic tumour
     Dosage: UNK
  6. ACTINOMYCIN D [Suspect]
     Active Substance: DACTINOMYCIN
     Indication: Gestational trophoblastic tumour
     Dosage: UNK
  7. CYCLOPHOSPHAMIDE [Suspect]
     Active Substance: CYCLOPHOSPHAMIDE
     Indication: Gestational trophoblastic tumour
     Dosage: UNK
  8. VINCRISTINE [Suspect]
     Active Substance: VINCRISTINE
     Indication: Gestational trophoblastic tumour
     Dosage: UNK

REACTIONS (1)
  - Treatment failure [Unknown]
